FAERS Safety Report 23616517 (Version 1)
Quarter: 2024Q1

REPORT INFORMATION
  Report Type: Spontaneous
  Country: DE (occurrence: DE)
  Receive Date: 20240311
  Receipt Date: 20240311
  Transmission Date: 20240410
  Serious: Yes (Other)
  Sender: FDA-Public Use
  Company Number: None

PATIENT
  Age: 17 Year
  Sex: Male
  Weight: 61 kg

DRUGS (1)
  1. FENFLURAMINE HYDROCHLORIDE [Suspect]
     Active Substance: FENFLURAMINE HYDROCHLORIDE
     Indication: Severe myoclonic epilepsy of infancy
     Dosage: 22 MILLIGRAM, ONCE DAILY (QD)
     Route: 048
     Dates: start: 20201001

REACTIONS (2)
  - Pulmonary hypertension [Recovered/Resolved]
  - Right ventricular systolic pressure increased [Recovered/Resolved]

NARRATIVE: CASE EVENT DATE: 20240111
